FAERS Safety Report 18525438 (Version 2)
Quarter: 2023Q4

REPORT INFORMATION
  Report Type: Report from Study
  Country: US (occurrence: US)
  Receive Date: 20201120
  Receipt Date: 20231026
  Transmission Date: 20240109
  Serious: Yes (Life-Threatening, Hospitalization, Other)
  Sender: FDA-Public Use
  Company Number: US-ABBVIE-19P-163-2645537-00

PATIENT
  Age: 19 Year
  Sex: Male

DRUGS (2)
  1. HUMIRA [Suspect]
     Active Substance: ADALIMUMAB
     Indication: Crohn^s disease
     Route: 058
     Dates: start: 20151222
  2. GENOTROPIN [Concomitant]
     Active Substance: SOMATROPIN
     Indication: Growth hormone deficiency
     Route: 023
     Dates: start: 20141201

REACTIONS (2)
  - Mitral valve incompetence [Recovered/Resolved]
  - Cerebrovascular accident [Recovered/Resolved]

NARRATIVE: CASE EVENT DATE: 20190107
